FAERS Safety Report 6336213-1 (Version None)
Quarter: 2009Q3

REPORT INFORMATION
  Report Type: 
  Country: None (occurrence: None)
  Receive Date: 20090831
  Receipt Date: 20090831
  Transmission Date: 20100115
  Serious: No
  Sender: FDA-Public Use
  Company Number: None

PATIENT
  Age: 36 Year
  Sex: Female
  Weight: 56.6996 kg

DRUGS (1)
  1. ZICAM NASAL GEL MATRIX/ ZICAM [Suspect]
     Indication: NASOPHARYNGITIS
     Dosage: 1 TIME A DAY 3 DAYS NASAL
     Route: 045
     Dates: start: 20090617, end: 20090619

REACTIONS (2)
  - AGEUSIA [None]
  - ANOSMIA [None]
